FAERS Safety Report 7854348-9 (Version None)
Quarter: 2011Q3

REPORT INFORMATION
  Report Type: 
  Country: None (occurrence: None)
  Receive Date: 20110916
  Receipt Date: 20101116
  Transmission Date: 20111222
  Serious: Yes (Other)
  Sender: FDA-Public Use
  Company Number: 2010SP059066

PATIENT
  Age: 20 Year
  Sex: Female
  Weight: 123.3784 kg

DRUGS (10)
  1. PHENERGAN HCL [Concomitant]
  2. CELEXA [Concomitant]
  3. LIALDA [Concomitant]
  4. LACTAID [Concomitant]
  5. IMPLANON [Suspect]
     Indication: CONTRACEPTION
     Dosage: 1 DF;SBDE
     Route: 059
     Dates: start: 20101019, end: 20101102
  6. HUMIRA [Concomitant]
  7. IRON [Concomitant]
  8. PROBIOTIC COMPLEX (PROBIOTICS (UNSPECIFIED)) [Concomitant]
  9. CALCIUM [Concomitant]
  10. MULTI-VITAMIN [Concomitant]

REACTIONS (3)
  - HEADACHE [None]
  - NAUSEA [None]
  - VOMITING [None]
